FAERS Safety Report 15314187 (Version 1)
Quarter: 2018Q3

REPORT INFORMATION
  Report Type: Spontaneous
  Country: US (occurrence: US)
  Receive Date: 20180814
  Receipt Date: 20180814
  Transmission Date: 20181010
  Serious: No
  Sender: FDA-Public Use
  Company Number: None

PATIENT
  Sex: Male

DRUGS (4)
  1. FLEXERIL [Suspect]
     Active Substance: CYCLOBENZAPRINE HYDROCHLORIDE
  2. CLONIDINE. [Suspect]
     Active Substance: CLONIDINE
  3. DARVON [Suspect]
     Active Substance: PROPOXYPHENE HYDROCHLORIDE
  4. ELAVIL [Suspect]
     Active Substance: AMITRIPTYLINE HYDROCHLORIDE

REACTIONS (13)
  - Visual impairment [None]
  - Abnormal behaviour [None]
  - Palpitations [None]
  - Dyspnoea [None]
  - Overdose [None]
  - Somnambulism [None]
  - Hallucinations, mixed [None]
  - Feeling abnormal [None]
  - Fear of death [None]
  - Depression [None]
  - Irritability [None]
  - Blood pressure increased [None]
  - Dizziness [None]
